FAERS Safety Report 8297036-X (Version None)
Quarter: 2012Q2

REPORT INFORMATION
  Report Type: 
  Country: None (occurrence: None)
  Receive Date: 20120413
  Receipt Date: 20120330
  Transmission Date: 20120825
  Serious: Yes (Hospitalization)
  Sender: FDA-Public Use
  Company Number: SAN_00065_2012

PATIENT
  Age: 22 Year
  Sex: Male

DRUGS (1)
  1. METFORMIN HCL [Suspect]
     Indication: TYPE 2 DIABETES MELLITUS
     Dosage: (48000 MG 1X, NOT THE RECOMMENDED DOSE ORAL), (750 MG)
     Route: 048

REACTIONS (8)
  - RENAL IMPAIRMENT [None]
  - PROTHROMBIN LEVEL DECREASED [None]
  - VOMITING [None]
  - HAEMODIALYSIS [None]
  - INTENTIONAL OVERDOSE [None]
  - DIARRHOEA [None]
  - BLOOD PH DECREASED [None]
  - SUICIDE ATTEMPT [None]
